FAERS Safety Report 9237159 (Version 1)
Quarter: 2013Q2

REPORT INFORMATION
  Report Type: Spontaneous
  Country: US (occurrence: US)
  Receive Date: 20130417
  Receipt Date: 20130417
  Transmission Date: 20140414
  Serious: Yes (Other)
  Sender: FDA-Public Use
  Company Number: US-ASTRAZENECA-2013SE23012

PATIENT
  Age: 48 Year
  Sex: Female
  Weight: 88.5 kg

DRUGS (17)
  1. NEXIUM [Suspect]
     Indication: GASTROOESOPHAGEAL REFLUX DISEASE
     Route: 048
     Dates: start: 2012
  2. LISINOPRIL [Suspect]
     Indication: HYPERTENSION
     Route: 048
     Dates: start: 2007
  3. LIPITOR [Concomitant]
     Indication: BLOOD CHOLESTEROL INCREASED
     Route: 048
  4. COREG [Concomitant]
     Indication: CARDIAC DISORDER
     Route: 048
     Dates: start: 2007
  5. HYDROCHLOROTHIAZIDE [Concomitant]
     Indication: DIURETIC THERAPY
     Route: 048
     Dates: start: 2007
  6. PLAVIX [Concomitant]
     Indication: CARDIAC DISORDER
     Route: 048
     Dates: start: 2007, end: 201301
  7. POTASSIUM [Concomitant]
     Indication: PROPHYLAXIS
     Route: 048
     Dates: start: 2007
  8. NITROGLYCERIN [Concomitant]
     Indication: CARDIAC DISORDER
     Dosage: PRN
     Route: 048
     Dates: start: 1994
  9. ASPIRIN [Concomitant]
     Indication: BODY TEMPERATURE INCREASED
     Route: 048
     Dates: start: 2007
  10. SPIRIVA [Concomitant]
     Indication: CHRONIC OBSTRUCTIVE PULMONARY DISEASE
     Route: 055
     Dates: start: 2012
  11. ADVAIR [Concomitant]
     Indication: CHRONIC OBSTRUCTIVE PULMONARY DISEASE
     Dosage: 200/50 Q12H
     Route: 055
     Dates: start: 2012
  12. ALBUTEROL [Concomitant]
     Indication: RESPIRATORY DISORDER
     Dosage: PRN
     Route: 055
  13. ZOLOFT [Concomitant]
     Indication: DEPRESSION
     Route: 048
  14. XANAX [Concomitant]
     Indication: ANXIETY
     Route: 048
  15. PHARMA [Concomitant]
     Indication: MUSCLE RELAXANT THERAPY
     Route: 048
  16. OXYCODONE [Concomitant]
     Indication: PAIN
     Route: 048
     Dates: start: 201212
  17. EFFIENT [Concomitant]
     Indication: CARDIAC DISORDER
     Route: 048
     Dates: start: 201301

REACTIONS (17)
  - Road traffic accident [Unknown]
  - Aneurysm [Unknown]
  - Back disorder [Unknown]
  - Myocardial infarction [Unknown]
  - Neck pain [Unknown]
  - Chest pain [Unknown]
  - Anxiety [Unknown]
  - Chronic obstructive pulmonary disease [Unknown]
  - Blood cholesterol increased [Unknown]
  - Body height decreased [Unknown]
  - Chest discomfort [Unknown]
  - Respiratory disorder [Unknown]
  - Dyspnoea [Unknown]
  - Hypoaesthesia [Unknown]
  - Depression [Unknown]
  - Paraesthesia [Unknown]
  - Drug dose omission [Unknown]
